FAERS Safety Report 5332451-5 (Version None)
Quarter: 2007Q2

REPORT INFORMATION
  Report Type: 
  Country: None (occurrence: None)
  Receive Date: 20070523
  Receipt Date: 20070514
  Transmission Date: 20071010
  Serious: Yes (Other)
  Sender: FDA-Public Use
  Company Number: FR-ASTRAZENECA-2007CG00728

PATIENT
  Sex: Female

DRUGS (1)
  1. NAROPEINE [Suspect]
     Indication: PROCEDURAL PAIN
     Dates: start: 20070115, end: 20070115

REACTIONS (3)
  - FEMORAL NERVE INJURY [None]
  - MONOPLEGIA [None]
  - SENSORY LOSS [None]
